FAERS Safety Report 5391516-2 (Version None)
Quarter: 2007Q3

REPORT INFORMATION
  Report Type: 
  Country: None (occurrence: None)
  Receive Date: 20070719
  Receipt Date: 20070712
  Transmission Date: 20080115
  Serious: Yes (Hospitalization)
  Sender: FDA-Public Use
  Company Number: US-PFIZER INC-2007057065

PATIENT
  Sex: Male
  Weight: 90.7 kg

DRUGS (4)
  1. CELEBREX [Suspect]
     Indication: HEADACHE
     Dates: start: 20030101, end: 20050101
  2. CELEBREX [Suspect]
     Indication: BACK PAIN
  3. CELEBREX [Suspect]
     Indication: CHEST PAIN
  4. CELEBREX [Suspect]
     Indication: ARTHRALGIA

REACTIONS (3)
  - PULMONARY EMBOLISM [None]
  - SLEEP APNOEA SYNDROME [None]
  - THROMBOSIS [None]
